FAERS Safety Report 25152499 (Version 2)
Quarter: 2025Q2

REPORT INFORMATION
  Report Type: Spontaneous
  Country: IL (occurrence: IL)
  Receive Date: 20250402
  Receipt Date: 20250611
  Transmission Date: 20250716
  Serious: No
  Sender: BLUEPRINT MEDICINES
  Company Number: IL-Blueprint Medicines Corporation-2025-AER-00611

PATIENT
  Sex: Male

DRUGS (2)
  1. AYVAKIT [Suspect]
     Active Substance: AVAPRITINIB
     Indication: Advanced systemic mastocytosis
     Route: 065
     Dates: end: 2025
  2. AYVAKIT [Suspect]
     Active Substance: AVAPRITINIB
     Route: 065
     Dates: start: 2025, end: 202504

REACTIONS (8)
  - Headache [Unknown]
  - Dry mouth [Unknown]
  - Dysgeusia [Unknown]
  - Asthenia [Recovering/Resolving]
  - Lacrimation increased [Unknown]
  - Eye irritation [Unknown]
  - Heart rate increased [Unknown]
  - Palpitations [Unknown]

NARRATIVE: CASE EVENT DATE: 20250101
